FAERS Safety Report 24252379 (Version 1)
Quarter: 2024Q3

REPORT INFORMATION
  Report Type: Spontaneous
  Country: IN (occurrence: IN)
  Receive Date: 20240827
  Receipt Date: 20240827
  Transmission Date: 20241017
  Serious: Yes (Life-Threatening, Other)
  Sender: ALKEM
  Company Number: None

PATIENT
  Age: 64 Year
  Sex: Male

DRUGS (1)
  1. GABAPENTIN [Suspect]
     Active Substance: GABAPENTIN
     Indication: Diabetic neuropathy
     Dosage: 1 DOSAGE FORM, QD (EVERY 1 DAY)
     Route: 065

REACTIONS (6)
  - Toxicity to various agents [Recovering/Resolving]
  - Drug level increased [Unknown]
  - Depressed level of consciousness [Unknown]
  - Mental status changes [Recovering/Resolving]
  - Myoclonus [Recovering/Resolving]
  - Somnolence [Recovering/Resolving]
